FAERS Safety Report 18208166 (Version 4)
Quarter: 2020Q3

REPORT INFORMATION
  Report Type: Spontaneous
  Country: US (occurrence: US)
  Receive Date: 20200828
  Receipt Date: 20200921
  Transmission Date: 20201103
  Serious: No
  Sender: FDA-Public Use
  Company Number: US-SA-2020SA229033

PATIENT

DRUGS (2)
  1. NASACORT ALLERGY 24HR [Suspect]
     Active Substance: TRIAMCINOLONE ACETONIDE
     Indication: SJOGREN^S SYNDROME
     Dosage: (2 SPRAYS INTO EACH NOSTRIL), QD
     Route: 045
  2. NASACORT ALLERGY 24HR [Suspect]
     Active Substance: TRIAMCINOLONE ACETONIDE
     Indication: NASAL DRYNESS
     Dosage: UNK UNK, BID (1 SPRAY IN EACH NOSTRIL TWO TIMES A DAY)
     Route: 045

REACTIONS (4)
  - Epistaxis [Not Recovered/Not Resolved]
  - Incorrect dose administered [Unknown]
  - Off label use [Unknown]
  - Therapeutic product effect incomplete [Unknown]
